FAERS Safety Report 21470303 (Version 2)
Quarter: 2022Q4

REPORT INFORMATION
  Report Type: Report from Study
  Country: BR (occurrence: BR)
  Receive Date: 20221018
  Receipt Date: 20221021
  Transmission Date: 20230113
  Serious: Yes (Death, Other)
  Sender: FDA-Public Use
  Company Number: BR-BoehringerIngelheim-2021-BI-122651

PATIENT
  Age: 59 Year
  Sex: Male
  Weight: 92 kg

DRUGS (3)
  1. OFEV [Suspect]
     Active Substance: NINTEDANIB
     Indication: Idiopathic pulmonary fibrosis
     Route: 048
     Dates: start: 20210810, end: 202207
  2. DOMPERIDONE [Concomitant]
     Active Substance: DOMPERIDONE
     Indication: Product used for unknown indication
     Route: 048
  3. ALLERGY RELIEF [Concomitant]
     Indication: Hypersensitivity

REACTIONS (3)
  - Idiopathic pulmonary fibrosis [Fatal]
  - Product dose omission issue [Fatal]
  - Constipation [Recovered/Resolved]

NARRATIVE: CASE EVENT DATE: 20210810
